FAERS Safety Report 14951173 (Version 12)
Quarter: 2020Q4

REPORT INFORMATION
  Report Type: Report from Study
  Country: PL (occurrence: PL)
  Receive Date: 20180530
  Receipt Date: 20201116
  Transmission Date: 20210113
  Serious: Yes (Death, Hospitalization)
  Sender: FDA-Public Use
  Company Number: PL-ROCHE-2126672

PATIENT
  Age: 51 Year
  Sex: Male
  Weight: 94 kg

DRUGS (102)
  1. OMEPRAZOLE. [Concomitant]
     Active Substance: OMEPRAZOLE
     Indication: GASTROINTESTINAL DISORDER PROPHYLAXIS
     Dates: start: 20180517, end: 20180517
  2. DICLAC [Concomitant]
     Active Substance: DICLOFENAC
     Dates: start: 20180724, end: 20180724
  3. RANIGAST [Concomitant]
     Dates: start: 20181002, end: 20181002
  4. RANIGAST [Concomitant]
     Dates: start: 20190122, end: 20190122
  5. ONDANSETRON [Concomitant]
     Active Substance: ONDANSETRON
     Indication: NAUSEA
     Dates: start: 20180605, end: 20180605
  6. ONDANSETRON [Concomitant]
     Active Substance: ONDANSETRON
     Dates: start: 20180807, end: 20180807
  7. ONDANSETRON [Concomitant]
     Active Substance: ONDANSETRON
     Dates: start: 20180918, end: 20180918
  8. ONDANSETRON [Concomitant]
     Active Substance: ONDANSETRON
     Dates: start: 20190122, end: 20190122
  9. PARACETAMOL [Concomitant]
     Active Substance: ACETAMINOPHEN
     Dates: start: 20181030, end: 20181030
  10. PARACETAMOL [Concomitant]
     Active Substance: ACETAMINOPHEN
     Dates: start: 20181113, end: 20181113
  11. PARACETAMOL [Concomitant]
     Active Substance: ACETAMINOPHEN
     Dates: start: 20190108, end: 20190108
  12. PERFALGAN [Concomitant]
     Active Substance: ACETAMINOPHEN
     Dates: start: 20181002, end: 20181002
  13. DICLAC [Concomitant]
     Active Substance: DICLOFENAC
     Dates: start: 20181211, end: 20181211
  14. RANIGAST [Concomitant]
     Dates: start: 20180529, end: 20180529
  15. RANIGAST [Concomitant]
     Dates: start: 20181211, end: 20181211
  16. RANIGAST [Concomitant]
     Dates: start: 20181227, end: 20181227
  17. RANIGAST [Concomitant]
     Dates: start: 20190108, end: 20190108
  18. ONDANSETRON [Concomitant]
     Active Substance: ONDANSETRON
     Dates: start: 20180626, end: 20180626
  19. NEOPARIN [Concomitant]
     Active Substance: ENOXAPARIN SODIUM
     Dates: start: 20180525
  20. POLPRAZOL [Concomitant]
     Active Substance: OMEPRAZOLE
     Indication: PROPHYLAXIS
     Dates: start: 20180517, end: 20180517
  21. PARACETAMOL [Concomitant]
     Active Substance: ACETAMINOPHEN
     Dates: start: 20180710, end: 20180710
  22. PARACETAMOL [Concomitant]
     Active Substance: ACETAMINOPHEN
     Dates: start: 20181211, end: 20181211
  23. PERFALGAN [Concomitant]
     Active Substance: ACETAMINOPHEN
     Dates: start: 20180605, end: 20180605
  24. PERFALGAN [Concomitant]
     Active Substance: ACETAMINOPHEN
     Dates: start: 20180515, end: 20180517
  25. PERFALGAN [Concomitant]
     Active Substance: ACETAMINOPHEN
     Dates: start: 20181016, end: 20181016
  26. DICLAC [Concomitant]
     Active Substance: DICLOFENAC
     Dates: start: 20180529, end: 20180529
  27. DICLAC [Concomitant]
     Active Substance: DICLOFENAC
     Dates: start: 20180821, end: 20180821
  28. DICLAC [Concomitant]
     Active Substance: DICLOFENAC
     Dates: start: 20190108, end: 20190108
  29. RANIGAST [Concomitant]
     Dates: start: 20180724, end: 20180724
  30. ONDANSETRON [Concomitant]
     Active Substance: ONDANSETRON
     Dates: start: 20180612, end: 20180612
  31. ONDANSETRON [Concomitant]
     Active Substance: ONDANSETRON
     Dates: start: 20180710, end: 20180710
  32. ONDANSETRON [Concomitant]
     Active Substance: ONDANSETRON
     Dates: start: 20181211, end: 20181211
  33. KETONAL (POLAND) [Concomitant]
     Dates: start: 20180529, end: 20180601
  34. PARACETAMOL [Concomitant]
     Active Substance: ACETAMINOPHEN
     Dates: start: 20180605, end: 20180607
  35. PYRALGINA [Concomitant]
     Active Substance: METAMIZOLE MAGNESIUM
     Indication: PYREXIA
     Dates: start: 20180515, end: 20180515
  36. PYRALGINA [Concomitant]
     Active Substance: METAMIZOLE MAGNESIUM
     Dates: start: 20180516, end: 20180516
  37. ATEZOLIZUMAB. [Suspect]
     Active Substance: ATEZOLIZUMAB
     Indication: NON-SMALL CELL LUNG CANCER
     Dosage: AS PER PROTOCOL: ATEZOLIZUMAB IV INFUSION WILL BE ADMINISTERED IN COMBINATION Q2W AT A DOSE OF 840 M
     Route: 042
     Dates: start: 20180515
  38. DICLAC [Concomitant]
     Active Substance: DICLOFENAC
     Dates: start: 20180918, end: 20180918
  39. DICLAC [Concomitant]
     Active Substance: DICLOFENAC
     Dates: start: 20181227, end: 20181227
  40. RANIGAST [Concomitant]
     Dates: start: 20181016, end: 20181016
  41. ONDANSETRON [Concomitant]
     Active Substance: ONDANSETRON
     Dates: start: 20181002, end: 20181002
  42. ONDANSETRON [Concomitant]
     Active Substance: ONDANSETRON
     Dates: start: 20181030, end: 20181030
  43. ONDANSETRON [Concomitant]
     Active Substance: ONDANSETRON
     Dates: start: 20181127, end: 20181127
  44. ONDANSETRON [Concomitant]
     Active Substance: ONDANSETRON
     Dates: start: 20180724, end: 20180724
  45. PARACETAMOL [Concomitant]
     Active Substance: ACETAMINOPHEN
     Dates: start: 20180529, end: 20180601
  46. PARACETAMOL [Concomitant]
     Active Substance: ACETAMINOPHEN
     Dates: start: 20180807, end: 20180807
  47. PARACETAMOL [Concomitant]
     Active Substance: ACETAMINOPHEN
     Dates: start: 20180904, end: 20180904
  48. PARACETAMOL [Concomitant]
     Active Substance: ACETAMINOPHEN
     Dates: start: 20180724, end: 20180724
  49. RO6874281 (FAP IL2V MAB) [Suspect]
     Active Substance: SIMLUKAFUSP ALFA
     Indication: NON-SMALL CELL LUNG CANCER
     Dosage: AS PER PROTOCOL: RO6874281 INTRAVENOUS (IV) INFUSION ONCE IN A WEEK (QW) FOR FIRST 4 DOSES, AND ONCE
     Route: 042
     Dates: start: 20180515
  50. ONDANSETRON [Concomitant]
     Active Substance: ONDANSETRON
     Indication: VOMITING
     Dates: start: 20180529, end: 20180529
  51. ONDANSETRON [Concomitant]
     Active Substance: ONDANSETRON
     Dates: start: 20180904, end: 20180904
  52. ONDANSETRON [Concomitant]
     Active Substance: ONDANSETRON
     Dates: start: 20181113, end: 20181113
  53. ONDANSETRON [Concomitant]
     Active Substance: ONDANSETRON
     Dates: start: 20190108, end: 20190108
  54. KETONAL (POLAND) [Concomitant]
     Dates: start: 20180606, end: 20180607
  55. PARACETAMOL [Concomitant]
     Active Substance: ACETAMINOPHEN
     Indication: PROPHYLAXIS
     Dates: start: 20180626, end: 20180626
  56. PERFALGAN [Concomitant]
     Active Substance: ACETAMINOPHEN
     Indication: PREMEDICATION
     Dates: start: 20180515, end: 20180515
  57. DICLAC [Concomitant]
     Active Substance: DICLOFENAC
     Dates: start: 20180612, end: 20180612
  58. DICLAC [Concomitant]
     Active Substance: DICLOFENAC
     Dates: start: 20181002, end: 20181002
  59. DICLAC [Concomitant]
     Active Substance: DICLOFENAC
     Dates: start: 20181127, end: 20181127
  60. RANIGAST [Concomitant]
     Indication: PREMEDICATION
     Dates: start: 20180515, end: 20180515
  61. RANIGAST [Concomitant]
     Dates: start: 20180605, end: 20180605
  62. RANIGAST [Concomitant]
     Dates: start: 20180626, end: 20180626
  63. RANIGAST [Concomitant]
     Dates: start: 20180807, end: 20180807
  64. RANIGAST [Concomitant]
     Dates: start: 20181113, end: 20181113
  65. RANIGAST [Concomitant]
     Dates: start: 20181127, end: 20181127
  66. NEOPARIN [Concomitant]
     Active Substance: ENOXAPARIN SODIUM
     Dates: start: 20180530
  67. PANTOPRAZOLE [Concomitant]
     Active Substance: PANTOPRAZOLE
     Indication: PROPHYLAXIS
     Dates: start: 20180516, end: 20180516
  68. PARACETAMOL [Concomitant]
     Active Substance: ACETAMINOPHEN
     Dates: start: 20180515, end: 20180517
  69. PARACETAMOL [Concomitant]
     Active Substance: ACETAMINOPHEN
     Dates: start: 20181127, end: 20181127
  70. PARACETAMOL [Concomitant]
     Active Substance: ACETAMINOPHEN
     Dates: start: 20190122, end: 20190122
  71. PERFALGAN [Concomitant]
     Active Substance: ACETAMINOPHEN
     Dates: start: 20180529, end: 20180529
  72. DICLAC [Concomitant]
     Active Substance: DICLOFENAC
     Dates: start: 20180626, end: 20180626
  73. DICLAC [Concomitant]
     Active Substance: DICLOFENAC
     Dates: start: 20190122, end: 20190122
  74. RANIGAST [Concomitant]
     Dates: start: 20180904, end: 20180904
  75. RANIGAST [Concomitant]
     Dates: start: 20180918, end: 20180918
  76. ONDANSETRON [Concomitant]
     Active Substance: ONDANSETRON
     Indication: PREMEDICATION
     Dates: start: 20180515, end: 20180515
  77. ONDANSETRON [Concomitant]
     Active Substance: ONDANSETRON
     Dates: start: 20180821, end: 20180821
  78. ONDANSETRON [Concomitant]
     Active Substance: ONDANSETRON
     Dates: start: 20181227, end: 20181227
  79. ENOXAPARIN [Concomitant]
     Active Substance: ENOXAPARIN
     Indication: PROPHYLAXIS
     Dates: start: 20180521
  80. KETONAL (POLAND) [Concomitant]
     Indication: PROPHYLAXIS
     Dates: start: 20180516, end: 20180517
  81. PARACETAMOL [Concomitant]
     Active Substance: ACETAMINOPHEN
     Dates: start: 20180821, end: 20180821
  82. PARACETAMOL [Concomitant]
     Active Substance: ACETAMINOPHEN
     Dates: start: 20180918, end: 20180918
  83. PARACETAMOL [Concomitant]
     Active Substance: ACETAMINOPHEN
     Dates: start: 20181227, end: 20181227
  84. PERFALGAN [Concomitant]
     Active Substance: ACETAMINOPHEN
     Dates: start: 20180612, end: 20180613
  85. DICLAC [Concomitant]
     Active Substance: DICLOFENAC
     Indication: PREMEDICATION
     Dates: start: 20180515, end: 20180515
  86. DICLAC [Concomitant]
     Active Substance: DICLOFENAC
     Dates: start: 20180605, end: 20180605
  87. DICLAC [Concomitant]
     Active Substance: DICLOFENAC
     Dates: start: 20180710, end: 20180710
  88. DICLAC [Concomitant]
     Active Substance: DICLOFENAC
     Dates: start: 20180807, end: 20180807
  89. DICLAC [Concomitant]
     Active Substance: DICLOFENAC
     Dates: start: 20180904, end: 20180904
  90. DICLAC [Concomitant]
     Active Substance: DICLOFENAC
     Dates: start: 20181016, end: 20181016
  91. DICLAC [Concomitant]
     Active Substance: DICLOFENAC
     Dates: start: 20181030, end: 20181030
  92. DICLAC [Concomitant]
     Active Substance: DICLOFENAC
     Dates: start: 20181113, end: 20181113
  93. RANIGAST [Concomitant]
     Dates: start: 20180612, end: 20180612
  94. RANIGAST [Concomitant]
     Dates: start: 20180710, end: 20180710
  95. RANIGAST [Concomitant]
     Dates: start: 20180821, end: 20180821
  96. RANIGAST [Concomitant]
     Dates: start: 20181030, end: 20181030
  97. ONDANSETRON [Concomitant]
     Active Substance: ONDANSETRON
     Dates: start: 20181016, end: 20181016
  98. POLPRAZOL [Concomitant]
     Active Substance: OMEPRAZOLE
     Dates: start: 20180516, end: 20180517
  99. MILURIT [Concomitant]
     Active Substance: ALLOPURINOL
     Indication: PROPHYLAXIS
     Dates: start: 20180530
  100. PARACETAMOL [Concomitant]
     Active Substance: ACETAMINOPHEN
     Indication: PREMEDICATION
     Dates: start: 20180612, end: 20180612
  101. PARACETAMOL [Concomitant]
     Active Substance: ACETAMINOPHEN
     Dates: start: 20180515, end: 20200515
  102. LOW MOLECULAR WEIGHT HEPARIN [Concomitant]
     Active Substance: UNSPECIFIED INGREDIENT

REACTIONS (1)
  - Systemic immune activation [Recovered/Resolved]

NARRATIVE: CASE EVENT DATE: 20180517
